FAERS Safety Report 5815464-6 (Version None)
Quarter: 2008Q3

REPORT INFORMATION
  Report Type: 
  Country: None (occurrence: None)
  Receive Date: 20080718
  Receipt Date: 20080708
  Transmission Date: 20090109
  Serious: Yes (Hospitalization)
  Sender: FDA-Public Use
  Company Number: NZ-PFIZER INC-2008057022

PATIENT
  Sex: Female

DRUGS (3)
  1. CHANTIX [Suspect]
  2. PREDNISONE TAB [Concomitant]
  3. ALL OTHER THERAPEUTIC PRODUCTS [Concomitant]

REACTIONS (1)
  - PULMONARY CONGESTION [None]
